FAERS Safety Report 24763681 (Version 1)
Quarter: 2024Q4

REPORT INFORMATION
  Report Type: Spontaneous
  Country: IL (occurrence: IL)
  Receive Date: 20241223
  Receipt Date: 20241223
  Transmission Date: 20250114
  Serious: Yes (Hospitalization, Other)
  Sender: EPIC PHARM
  Company Number: IL-EPICPHARMA-IL-2024EPCLIT01576

PATIENT
  Age: 26 Year
  Sex: Male

DRUGS (1)
  1. OXYCODONE AND ACETAMINOPHEN [Suspect]
     Active Substance: ACETAMINOPHEN\OXYCODONE HYDROCHLORIDE
     Indication: Product used for unknown indication

REACTIONS (5)
  - Respiratory tract inflammation [Unknown]
  - Pharyngeal lesion [Unknown]
  - Leukocytosis [Unknown]
  - Thrombocytosis [Unknown]
  - Drug abuse [Unknown]
